FAERS Safety Report 6836177-8 (Version None)
Quarter: 2010Q3

REPORT INFORMATION
  Report Type: 
  Country: None (occurrence: None)
  Receive Date: 20100713
  Receipt Date: 20100708
  Transmission Date: 20110219
  Serious: Yes (Other)
  Sender: FDA-Public Use
  Company Number: CA-ROCHE-714307

PATIENT
  Age: 28 Year
  Sex: Male

DRUGS (2)
  1. ACCUTANE [Suspect]
     Indication: ACNE
     Route: 048
  2. ACCUTANE [Suspect]
     Route: 048

REACTIONS (2)
  - ARTHRALGIA [None]
  - GOUT [None]
